FAERS Safety Report 5277059-5 (Version None)
Quarter: 2007Q1

REPORT INFORMATION
  Report Type: 
  Country: None (occurrence: None)
  Receive Date: 20061213
  Receipt Date: 20050117
  Transmission Date: 20070707
  Serious: No
  Sender: FDA-Public Use
  Company Number: 2005AC00094

PATIENT
  Age: 14 Year
  Sex: Male
  Weight: 73 kg

DRUGS (9)
  1. QUETIAPINE FUMARATE [Suspect]
     Indication: AGITATION
     Dosage: 100 MG BID; PO
     Route: 048
  2. QUETIAPINE FUMARATE [Suspect]
     Indication: ANXIETY
     Dosage: 100 MG BID; PO
     Route: 048
  3. QUETIAPINE FUMARATE [Suspect]
     Indication: AGITATION
     Dosage: 500 MG HS; PO
     Route: 048
  4. QUETIAPINE FUMARATE [Suspect]
     Indication: ANXIETY
     Dosage: 500 MG HS; PO
     Route: 048
  5. QUETIAPINE FUMARATE [Suspect]
     Indication: AGITATION
     Dosage: 50 MG, PRN; PO
     Route: 048
  6. QUETIAPINE FUMARATE [Suspect]
     Indication: ANXIETY
     Dosage: 50 MG, PRN; PO
     Route: 048
  7. QUETIAPINE FUMARATE [Suspect]
     Indication: AGITATION
     Dosage: 100 MG ONCE; PO
     Route: 048
  8. QUETIAPINE FUMARATE [Suspect]
     Indication: ANXIETY
     Dosage: 100 MG ONCE; PO
     Route: 048
  9. MIRTAZAPINE [Concomitant]

REACTIONS (4)
  - ELECTROCARDIOGRAM QT CORRECTED INTERVAL PROLONGED [None]
  - INTENTIONAL DRUG MISUSE [None]
  - NEUTROPENIA [None]
  - SUICIDE ATTEMPT [None]
